FAERS Safety Report 6635209-X (Version None)
Quarter: 2010Q1

REPORT INFORMATION
  Report Type: 
  Country: None (occurrence: None)
  Receive Date: 20100315
  Receipt Date: 20100303
  Transmission Date: 20100710
  Serious: Yes (Other)
  Sender: FDA-Public Use
  Company Number: US-PFIZER INC-2010016558

PATIENT
  Sex: Female
  Weight: 90.703 kg

DRUGS (4)
  1. CHANTIX [Suspect]
     Indication: SMOKING CESSATION THERAPY
     Dosage: 0.5 MG, UNK
     Route: 048
     Dates: start: 20100111
  2. CHANTIX [Suspect]
     Dosage: 1 MG, 2X/DAY
     Route: 048
     Dates: end: 20100201
  3. ADVIL LIQUI-GELS [Concomitant]
     Indication: HEADACHE
     Dosage: AS NEEDED
     Route: 048
  4. ZANTAC [Concomitant]
     Indication: GASTROOESOPHAGEAL REFLUX DISEASE
     Dosage: 150 MG, AS NEEDED

REACTIONS (10)
  - ABDOMINAL DISCOMFORT [None]
  - AGGRESSION [None]
  - FEELING ABNORMAL [None]
  - GINGIVAL PAIN [None]
  - HYPERSENSITIVITY [None]
  - NAUSEA [None]
  - OEDEMA MOUTH [None]
  - ORAL PAIN [None]
  - SWELLING FACE [None]
  - VOMITING [None]
